FAERS Safety Report 8505667-4 (Version None)
Quarter: 2012Q3

REPORT INFORMATION
  Report Type: 
  Country: None (occurrence: None)
  Receive Date: 20120712
  Receipt Date: 20120702
  Transmission Date: 20120928
  Serious: Yes (Other)
  Sender: FDA-Public Use
  Company Number: US-JNJFOC-20120701497

PATIENT
  Sex: Male
  Weight: 85.73 kg

DRUGS (6)
  1. DURAGESIC-100 [Suspect]
     Indication: NEUROPATHY PERIPHERAL
     Route: 062
     Dates: start: 20020101
  2. DURAGESIC-100 [Suspect]
     Route: 062
  3. DURAGESIC-100 [Suspect]
     Route: 062
     Dates: start: 20090101
  4. DURAGESIC-100 [Suspect]
     Route: 062
     Dates: start: 20090101
  5. DURAGESIC-100 [Suspect]
     Route: 062
  6. FENTANYL-100 [Suspect]
     Indication: NEUROPATHY PERIPHERAL
     Dosage: 50UG/HR AND 100 UG/HR
     Route: 062
     Dates: start: 20110101

REACTIONS (7)
  - AMNESIA [None]
  - INTERVERTEBRAL DISC PROTRUSION [None]
  - THERAPEUTIC RESPONSE DECREASED [None]
  - DRUG ADMINISTERED AT INAPPROPRIATE SITE [None]
  - PRODUCT QUALITY ISSUE [None]
  - PRODUCT ODOUR ABNORMAL [None]
  - INAPPROPRIATE SCHEDULE OF DRUG ADMINISTRATION [None]
